FAERS Safety Report 6267210-2 (Version None)
Quarter: 2009Q3

REPORT INFORMATION
  Report Type: 
  Country: None (occurrence: None)
  Receive Date: 20090714
  Receipt Date: 20090706
  Transmission Date: 20100115
  Serious: Yes (Hospitalization)
  Sender: FDA-Public Use
  Company Number: JP-JNJFOC-20090702642

PATIENT
  Age: 24 Year
  Sex: Male
  Weight: 63 kg

DRUGS (7)
  1. REMICADE [Suspect]
     Dosage: TOTAL OF 2 INFUSIONS
     Route: 042
  2. REMICADE [Suspect]
     Indication: CROHN'S DISEASE
     Route: 042
  3. PENTASA [Concomitant]
  4. MYSLEE [Concomitant]
     Route: 048
  5. BIOFERMIN [Concomitant]
     Route: 048
  6. MARZULENE [Concomitant]
     Route: 048
  7. ELENTAL [Concomitant]
     Route: 048

REACTIONS (1)
  - GRIP STRENGTH DECREASED [None]
